FAERS Safety Report 5424461-4 (Version None)
Quarter: 2007Q3

REPORT INFORMATION
  Report Type: 
  Country: None (occurrence: None)
  Receive Date: 20070823
  Receipt Date: 20070821
  Transmission Date: 20080115
  Serious: Yes (Other)
  Sender: FDA-Public Use
  Company Number: DE-MERCK-0708DEU00189

PATIENT
  Age: 70 Year
  Sex: Male

DRUGS (2)
  1. FOSAMAX PLUS D [Suspect]
     Indication: SPINAL FRACTURE
     Route: 048
  2. [THERAPY UNSPECIFIED] [Concomitant]
     Indication: EPILEPSY
     Route: 065

REACTIONS (1)
  - GRAND MAL CONVULSION [None]
